FAERS Safety Report 15946101 (Version 2)
Quarter: 2019Q1

REPORT INFORMATION
  Report Type: Spontaneous
  Country: US (occurrence: US)
  Receive Date: 20190211
  Receipt Date: 20190227
  Transmission Date: 20190417
  Serious: No
  Sender: FDA-Public Use
  Company Number: US-BAYER-2019-025842

PATIENT
  Age: 74 Year
  Sex: Male

DRUGS (2)
  1. ALIQOPA [Suspect]
     Active Substance: COPANLISIB
     Indication: LUNG SQUAMOUS CELL CARCINOMA METASTATIC
     Dosage: 60 MG
     Route: 042
     Dates: start: 20190204, end: 20190204
  2. ALIQOPA [Suspect]
     Active Substance: COPANLISIB
     Indication: LUNG SQUAMOUS CELL CARCINOMA METASTATIC
     Dosage: UNK
     Route: 042
     Dates: start: 201902

REACTIONS (9)
  - Hypoaesthesia oral [None]
  - Infusion related reaction [Recovering/Resolving]
  - Off label use [None]
  - Product use in unapproved indication [None]
  - Chills [Recovering/Resolving]
  - Paraesthesia oral [Recovering/Resolving]
  - Paraesthesia oral [None]
  - Hypoaesthesia oral [Recovering/Resolving]
  - Infusion related reaction [None]

NARRATIVE: CASE EVENT DATE: 201902
